FAERS Safety Report 5318535-6 (Version None)
Quarter: 2007Q2

REPORT INFORMATION
  Report Type: 
  Country: None (occurrence: None)
  Receive Date: 20070501
  Receipt Date: 20070423
  Transmission Date: 20071010
  Serious: Yes (Hospitalization)
  Sender: FDA-Public Use
  Company Number: 42153

PATIENT
  Age: 41 Year
  Sex: Male

DRUGS (2)
  1. OXYCODONE 5MG/ACETAMINOPHEN 325MG [Suspect]
     Indication: PAIN
     Dosage: 1-2/ Q4-6H/ORAL
     Route: 048
  2. COLCHICINE [Concomitant]

REACTIONS (12)
  - DEPRESSED LEVEL OF CONSCIOUSNESS [None]
  - HYPERHIDROSIS [None]
  - HYPOTENSION [None]
  - LETHARGY [None]
  - LOSS OF CONSCIOUSNESS [None]
  - MIOSIS [None]
  - PUPILLARY REFLEX IMPAIRED [None]
  - PYREXIA [None]
  - RESPIRATORY DEPRESSION [None]
  - SINUS ARREST [None]
  - SKIN DISCOLOURATION [None]
  - SLEEP APNOEA SYNDROME [None]
